FAERS Safety Report 10649534 (Version 1)
Quarter: 2014Q4

REPORT INFORMATION
  Report Type: Spontaneous
  Country: US (occurrence: US)
  Receive Date: 20141212
  Receipt Date: 20141212
  Transmission Date: 20150529
  Serious: No
  Sender: FDA-Public Use
  Company Number: US-LUNDBECK-DKLU1105723

PATIENT
  Age: 7 Year
  Sex: Male

DRUGS (1)
  1. ONFI [Suspect]
     Active Substance: CLOBAZAM
     Indication: ACQUIRED EPILEPTIC APHASIA
     Route: 065

REACTIONS (1)
  - Tooth discolouration [Not Recovered/Not Resolved]
